FAERS Safety Report 6765114-X (Version None)
Quarter: 2010Q2

REPORT INFORMATION
  Report Type: 
  Country: None (occurrence: None)
  Receive Date: 20100609
  Receipt Date: 20100609
  Transmission Date: 20101027
  Serious: Yes (Hospitalization, Disabling)
  Sender: FDA-Public Use
  Company Number: None

PATIENT
  Age: 58 Year
  Sex: Male
  Weight: 85.64 kg

DRUGS (2)
  1. LISINOPRIL AND HYDROCHLOROTHIAZIDE [Suspect]
     Indication: HYPERTENSION
     Dosage: LISINOPRIL 40MG/HCTZ 25MG ONCE DAILY PO
     Route: 048
     Dates: start: 20100528, end: 20100606
  2. CARBAMAZEPINE [Suspect]
     Indication: CONVULSION
     Dosage: CARBAMAZEPINE 100MG THREE TIMES DAILY PO
     Route: 048
     Dates: start: 20100507, end: 20100606

REACTIONS (4)
  - ANGIOEDEMA [None]
  - CONVULSION [None]
  - RASH ERYTHEMATOUS [None]
  - RASH PAPULAR [None]
